FAERS Safety Report 6129875-5 (Version None)
Quarter: 2009Q1

REPORT INFORMATION
  Report Type: 
  Country: None (occurrence: None)
  Receive Date: 20090324
  Receipt Date: 20090316
  Transmission Date: 20090719
  Serious: Yes (Hospitalization, Other)
  Sender: FDA-Public Use
  Company Number: GB-JNJFOC-20090303718

PATIENT
  Age: 81 Year
  Sex: Female
  Weight: 81 kg

DRUGS (16)
  1. REMICADE [Suspect]
     Indication: RHEUMATOID ARTHRITIS
     Route: 042
  2. PREDNISOLONE [Concomitant]
     Route: 048
  3. COAMILOFRUSE [Concomitant]
     Route: 048
  4. AMITRIPTYLINE HCL [Concomitant]
     Route: 048
  5. CELECOXIB [Concomitant]
     Route: 048
  6. LANSOPRAZOLE [Concomitant]
     Route: 048
  7. SALBUTAMOL [Concomitant]
     Dosage: DOSE: 2 PUFFS
     Route: 055
  8. SERETIDE [Concomitant]
     Dosage: 250 MICROGRAMS 1 PUFF
     Route: 055
  9. TIOTROPIUM BROMIDE [Concomitant]
     Dosage: 18 MICROGRAMS 1 PUFF
     Route: 055
  10. PARACETAMOL [Concomitant]
     Indication: BACK PAIN
     Route: 048
  11. TRAMADOL HCL [Concomitant]
     Indication: BACK PAIN
     Route: 048
  12. ALENDRONIC ACID [Concomitant]
     Route: 048
  13. CALCICHEW D3 FORTE [Concomitant]
     Route: 048
  14. CLEXANE [Concomitant]
     Route: 058
  15. CYCLIZINE [Concomitant]
     Dosage: AS NEEDED
     Route: 048
  16. SENNACOT [Concomitant]
     Route: 048

REACTIONS (3)
  - FALL [None]
  - LOWER RESPIRATORY TRACT INFECTION [None]
  - ROTATOR CUFF SYNDROME [None]
